FAERS Safety Report 9788920 (Version 1)
Quarter: 2013Q4

REPORT INFORMATION
  Report Type: Report from Study
  Country: GE (occurrence: GE)
  Receive Date: 20131230
  Receipt Date: 20131230
  Transmission Date: 20140711
  Serious: Yes (Hospitalization)
  Sender: FDA-Public Use
  Company Number: GE-GLAXOSMITHKLINE-B0956041A

PATIENT
  Age: 81 Year
  Sex: Male
  Weight: 110 kg

DRUGS (4)
  1. FLUTICASONE FUROATE [Suspect]
     Indication: CHRONIC OBSTRUCTIVE PULMONARY DISEASE
     Dosage: 100MCG PER DAY
     Route: 055
  2. VENTOLIN (SALBUTAMOL) [Concomitant]
     Indication: CHRONIC OBSTRUCTIVE PULMONARY DISEASE
     Route: 055
     Dates: start: 20110315
  3. VALSARTAN+HYDROCHLOROTHIAZIDE [Concomitant]
     Indication: HYPERTENSION
     Route: 048
     Dates: start: 20110315
  4. ATORVASTATIN [Concomitant]
     Indication: HYPERCHOLESTEROLAEMIA
     Dosage: 10MG PER DAY
     Route: 048
     Dates: start: 20110315

REACTIONS (1)
  - Ventricular tachycardia [Recovered/Resolved]
